FAERS Safety Report 14115301 (Version 2)
Quarter: 2017Q4

REPORT INFORMATION
  Report Type: Report from Study
  Country: CA (occurrence: CA)
  Receive Date: 20171023
  Receipt Date: 20171128
  Transmission Date: 20180321
  Serious: Yes (Other)
  Sender: FDA-Public Use
  Company Number: CA-GLAXOSMITHKLINE-CA2017GSK153475

PATIENT
  Age: 37 Year
  Sex: Female

DRUGS (7)
  1. COSENTYX [Suspect]
     Active Substance: SECUKINUMAB
     Indication: PSORIATIC ARTHROPATHY
     Dosage: 150 MG, WE
     Route: 058
     Dates: start: 20170928
  2. SULFASALAZINE. [Concomitant]
     Active Substance: SULFASALAZINE
  3. COSENTYX [Suspect]
     Active Substance: SECUKINUMAB
     Dosage: 150 MG, WE
     Route: 058
     Dates: start: 20171005
  4. DICLOFENAC SODIUM. [Suspect]
     Active Substance: DICLOFENAC SODIUM
     Indication: PRODUCT USED FOR UNKNOWN INDICATION
  5. COSENTYX [Suspect]
     Active Substance: SECUKINUMAB
     Dosage: 150 MG, QMO
     Route: 058
     Dates: start: 20171026
  6. METHOTREXATE. [Concomitant]
     Active Substance: METHOTREXATE
  7. COSENTYX [Suspect]
     Active Substance: SECUKINUMAB
     Dosage: 150 MG, WE
     Route: 058
     Dates: start: 20171012

REACTIONS (8)
  - Stress [Unknown]
  - Respiratory rate increased [Unknown]
  - Nervousness [Unknown]
  - Pain [Unknown]
  - Blood pressure increased [Unknown]
  - Fatigue [Unknown]
  - Insomnia [Unknown]
  - Therapeutic response decreased [Unknown]

NARRATIVE: CASE EVENT DATE: 20170928
